FAERS Safety Report 6417465-6 (Version None)
Quarter: 2009Q4

REPORT INFORMATION
  Report Type: 
  Country: None (occurrence: None)
  Receive Date: 20091028
  Receipt Date: 20091019
  Transmission Date: 20100525
  Serious: Yes (Other)
  Sender: FDA-Public Use
  Company Number: CA-BAYER-200919958GPV

PATIENT
  Age: 73 Year
  Sex: Male

DRUGS (9)
  1. ASPIRIN [Suspect]
     Indication: CARDIOVASCULAR DISORDER
  2. AMIODARONE [Suspect]
     Indication: CARDIOVASCULAR DISORDER
  3. ANGIOTENSIN-CONVERTING ENZYME INHIBITOR NOS [Suspect]
     Indication: CARDIOVASCULAR DISORDER
  4. BETA-BLOCKING AGENTS [Suspect]
     Indication: CARDIOVASCULAR DISORDER
  5. FERROUS GLUCONATE [Suspect]
     Indication: IRON DEFICIENCY ANAEMIA
  6. LASIX [Suspect]
     Indication: CARDIOVASCULAR DISORDER
  7. LEVOTHYROXINE SODIUM [Suspect]
     Indication: CARDIOVASCULAR DISORDER
  8. STATIN [Suspect]
     Indication: CARDIOVASCULAR DISORDER
  9. WARFARIN SODIUM [Suspect]
     Indication: CARDIOVASCULAR DISORDER

REACTIONS (13)
  - ADENOMA BENIGN [None]
  - COLITIS [None]
  - COLON ADENOMA [None]
  - COLONIC POLYP [None]
  - DYSPLASIA [None]
  - GASTRIC DYSPLASIA [None]
  - IRON DEFICIENCY ANAEMIA [None]
  - LYMPHOCYTIC INFILTRATION [None]
  - MESENTERIC VEIN THROMBOSIS [None]
  - MUCOSAL ATROPHY [None]
  - PHLEBITIS [None]
  - PLASMACYTOSIS [None]
  - VASCULITIS GASTROINTESTINAL [None]
